FAERS Safety Report 16572498 (Version 1)
Quarter: 2019Q3

REPORT INFORMATION
  Report Type: Report from Study
  Country: None (occurrence: US)
  Receive Date: 20190715
  Receipt Date: 20190715
  Transmission Date: 20191004
  Serious: Yes (Hospitalization)
  Sender: FDA-Public Use
  Company Number: US-ABBVIE-19K-163-2828367-00

PATIENT
  Age: 12 Year
  Sex: Female

DRUGS (1)
  1. HUMIRA [Suspect]
     Active Substance: ADALIMUMAB
     Indication: COLITIS ULCERATIVE
     Route: 058
     Dates: start: 20190603

REACTIONS (5)
  - Hypophagia [Recovering/Resolving]
  - Haemorrhage [Recovering/Resolving]
  - Vomiting [Recovering/Resolving]
  - Colitis ulcerative [Not Recovered/Not Resolved]
  - Anaemia [Recovering/Resolving]

NARRATIVE: CASE EVENT DATE: 20190616
